FAERS Safety Report 4822456-2 (Version None)
Quarter: 2005Q4

REPORT INFORMATION
  Report Type: 
  Country: None (occurrence: None)
  Receive Date: 20051104
  Receipt Date: 20051025
  Transmission Date: 20060501
  Serious: Yes (Hospitalization)
  Sender: FDA-Public Use
  Company Number: 2005AP000853

PATIENT
  Age: 72 Year
  Sex: Male

DRUGS (4)
  1. CAPTOPRIL [Suspect]
     Indication: CARDIAC DISORDER
     Dates: start: 19970101
  2. CILAZAPRIL (CILAZAPRIL) [Suspect]
     Indication: CARDIAC DISORDER
     Dates: start: 19970101
  3. ENALAPRIL MALEATE [Suspect]
     Indication: CARDIAC DISORDER
     Dates: start: 19970101
  4. GLYCERYL TRINITRATE [Concomitant]

REACTIONS (19)
  - ANAEMIA [None]
  - AORTIC VALVE STENOSIS [None]
  - ARTERIOSCLEROSIS [None]
  - AZOTAEMIA [None]
  - BLOOD CREATININE INCREASED [None]
  - BLOOD PRESSURE SYSTOLIC INCREASED [None]
  - CAROTID ARTERY STENOSIS [None]
  - DECREASED APPETITE [None]
  - FOOD AVERSION [None]
  - GASTROINTESTINAL CARCINOMA [None]
  - GLOMERULAR FILTRATION RATE DECREASED [None]
  - HAEMODIALYSIS [None]
  - HYPERKALAEMIA [None]
  - HYPERTENSION [None]
  - RENAL DISORDER [None]
  - RENAL FAILURE [None]
  - RENAL IMPAIRMENT [None]
  - RENAL ISCHAEMIA [None]
  - WEIGHT DECREASED [None]
